FAERS Safety Report 15634312 (Version 1)
Quarter: 2018Q4

REPORT INFORMATION
  Report Type: Spontaneous
  Country: PK (occurrence: PK)
  Receive Date: 20181119
  Receipt Date: 20181119
  Transmission Date: 20190205
  Serious: Yes (Other)
  Sender: FDA-Public Use
  Company Number: PHHY2018PK151010

PATIENT
  Age: 48 Year
  Sex: Female
  Weight: 61.2 kg

DRUGS (4)
  1. AMOXICILLIN+CLAVULANIC ACID [Suspect]
     Active Substance: AMOXICILLIN\CLAVULANIC ACID
     Indication: OROPHARYNGEAL PAIN
     Route: 065
  2. IBUPROFEN. [Suspect]
     Active Substance: IBUPROFEN
     Indication: COUGH
  3. AMOXICILLIN+CLAVULANIC ACID [Suspect]
     Active Substance: AMOXICILLIN\CLAVULANIC ACID
     Indication: COUGH
  4. IBUPROFEN. [Suspect]
     Active Substance: IBUPROFEN
     Indication: OROPHARYNGEAL PAIN
     Route: 065

REACTIONS (2)
  - Proteinuria [Recovering/Resolving]
  - Tubulointerstitial nephritis [Recovering/Resolving]
